FAERS Safety Report 10417865 (Version 1)
Quarter: 2014Q2

REPORT INFORMATION
  Report Type: Spontaneous
  Country: US (occurrence: None)
  Receive Date: 20140609
  Receipt Date: 20140609
  Transmission Date: 20141212
  Serious: No
  Sender: FDA-Public Use
  Company Number: 2014TUS000851

PATIENT
  Age: 46 Year
  Sex: Male

DRUGS (2)
  1. BRINTELLIX (VORTIOXETINE) TABLET [Suspect]
     Indication: DEPRESSION
     Route: 048
     Dates: start: 2014, end: 2014
  2. ALL OTHER THERAPEUTIC PRODUCTS [Concomitant]

REACTIONS (1)
  - Rash generalised [None]
